FAERS Safety Report 14170457 (Version 1)
Quarter: 2017Q4

REPORT INFORMATION
  Report Type: Report from Study
  Country: CN (occurrence: CN)
  Receive Date: 20171108
  Receipt Date: 20171108
  Transmission Date: 20180321
  Serious: Yes (Hospitalization)
  Sender: FDA-Public Use
  Company Number: CN-JNJFOC-20170911131

PATIENT
  Sex: Female
  Weight: 50 kg

DRUGS (15)
  1. MELITRACEN [Concomitant]
     Active Substance: MELITRACEN
     Indication: DEPRESSION
     Route: 048
     Dates: start: 20170822
  2. DABIGATRAN ETEXILATE [Concomitant]
     Active Substance: DABIGATRAN ETEXILATE
     Indication: ATRIAL FIBRILLATION
     Route: 048
     Dates: end: 20170929
  3. XARELTO [Suspect]
     Active Substance: RIVAROXABAN
     Indication: THROMBOSIS PROPHYLAXIS
     Route: 048
     Dates: start: 20170830
  4. ISOSORBIDE MONONITRATE. [Concomitant]
     Active Substance: ISOSORBIDE MONONITRATE
     Indication: CORONARY ARTERY DISEASE
     Route: 048
     Dates: start: 20170822
  5. ROSUVASTATIN CALCIUM. [Concomitant]
     Active Substance: ROSUVASTATIN CALCIUM
     Indication: CEREBRAL INFARCTION
     Route: 048
     Dates: start: 20170822
  6. GINKGO BILOBA [Concomitant]
     Active Substance: GINKGO
     Indication: CEREBRAL INFARCTION
     Route: 041
     Dates: start: 20170822, end: 20170830
  7. AMBROXOL HYDROCHLORIDE [Concomitant]
     Active Substance: AMBROXOL HYDROCHLORIDE
     Indication: PROPHYLAXIS
     Route: 040
     Dates: start: 20170823, end: 20170830
  8. XARELTO [Suspect]
     Active Substance: RIVAROXABAN
     Indication: ATRIAL FIBRILLATION
     Route: 048
     Dates: start: 20170830
  9. OXIRACETAM [Concomitant]
     Active Substance: OXIRACETAM
     Indication: CEREBRAL INFARCTION
     Route: 041
     Dates: start: 20170822, end: 20170830
  10. CITICOLINE SODIUM [Concomitant]
     Active Substance: CITICOLINE SODIUM
     Indication: CEREBRAL INFARCTION
     Route: 048
     Dates: start: 20170822, end: 20170830
  11. XARELTO [Suspect]
     Active Substance: RIVAROXABAN
     Indication: CEREBROVASCULAR ACCIDENT PROPHYLAXIS
     Route: 048
     Dates: start: 20170830
  12. METOPROLOL SUCCINATE. [Concomitant]
     Active Substance: METOPROLOL SUCCINATE
     Indication: ATRIAL FIBRILLATION
     Route: 048
     Dates: start: 20170822
  13. PANTOPRAZOLE SODIUM. [Concomitant]
     Active Substance: PANTOPRAZOLE SODIUM
     Indication: PROPHYLAXIS
     Route: 048
     Dates: start: 20170822, end: 20170830
  14. FLUPENTIXOL [Concomitant]
     Active Substance: FLUPENTIXOL
     Indication: DEPRESSION
     Route: 048
     Dates: start: 20170822
  15. POTASSIUM MAGNESIUM ASPARTATE [Concomitant]
     Active Substance: MAGNESIUM ASPARTATE\POTASSIUM ASPARTATE
     Indication: BLOOD POTASSIUM DECREASED
     Route: 048
     Dates: start: 20170823, end: 20170830

REACTIONS (2)
  - Pneumonia [Recovered/Resolved]
  - Cerebral infarction [Not Recovered/Not Resolved]

NARRATIVE: CASE EVENT DATE: 20170903
